FAERS Safety Report 19094479 (Version 1)
Quarter: 2021Q2

REPORT INFORMATION
  Report Type: Other
  Country: CA (occurrence: CA)
  Receive Date: 20210406
  Receipt Date: 20210406
  Transmission Date: 20210717
  Serious: Yes (Other)
  Sender: FDA-Public Use
  Company Number: CA-GLENMARK PHARMACEUTICALS-2021GMK053204

PATIENT

DRUGS (2)
  1. JAMP VITAMIN B12 [Suspect]
     Active Substance: CYANOCOBALAMIN
     Indication: VITAMIN B12 DEFICIENCY
     Dosage: 1 DOSAGE FORM, OD
     Route: 048
  2. URSODEOXYCHOLIC ACID [Suspect]
     Active Substance: URSODIOL
     Indication: BILIARY CIRRHOSIS
     Dosage: 1 DOSAGE FORM, OD (1 EVERY 1 DAYS)
     Route: 065

REACTIONS (5)
  - Vomiting [Not Recovered/Not Resolved]
  - Allergic reaction to excipient [Not Recovered/Not Resolved]
  - Decreased appetite [Not Recovered/Not Resolved]
  - Condition aggravated [Not Recovered/Not Resolved]
  - Nausea [Not Recovered/Not Resolved]
